FAERS Safety Report 5710716-2 (Version None)
Quarter: 2008Q2

REPORT INFORMATION
  Report Type: 
  Country: None (occurrence: None)
  Receive Date: 20080415
  Receipt Date: 20080331
  Transmission Date: 20081010
  Serious: Yes (Hospitalization)
  Sender: FDA-Public Use
  Company Number: AZAFR200800085

PATIENT
  Age: 72 Year
  Sex: Male
  Weight: 81 kg

DRUGS (9)
  1. VIDAZA [Suspect]
     Indication: MYELODYSPLASTIC SYNDROME
     Dosage: (75 MG/M2,DAILY X 7 DAYS), SUBCUTANEOUS
     Route: 058
     Dates: start: 20071116, end: 20071122
  2. GRANOCYTE(LENOGRASTIM) [Suspect]
     Indication: NEUTROPENIA
     Dosage: (TWICE WEEKLY), SUBCUTANEOUS
     Route: 058
     Dates: start: 20070828, end: 20071218
  3. DEPAKENE [Suspect]
     Indication: MYELODYSPLASTIC SYNDROME
     Dates: start: 20070628, end: 20071122
  4. VESANOID [Suspect]
     Indication: MYELODYSPLASTIC SYNDROME
     Dates: start: 20070705, end: 20071213
  5. SECTRAL [Concomitant]
  6. ALLOPURINOL [Concomitant]
  7. PANTOPRAZOLE SODIUM [Concomitant]
  8. RENITEC (ENALAPRIL) [Concomitant]
  9. FORLAX (MACROGOL) [Concomitant]

REACTIONS (5)
  - APNOEA [None]
  - BRONCHIAL OBSTRUCTION [None]
  - INTERSTITIAL LUNG DISEASE [None]
  - PULMONARY FIBROSIS [None]
  - PULMONARY FUNCTION TEST ABNORMAL [None]
